FAERS Safety Report 6746235-4 (Version None)
Quarter: 2010Q2

REPORT INFORMATION
  Report Type: 
  Country: None (occurrence: None)
  Receive Date: 20100528
  Receipt Date: 20090401
  Transmission Date: 20101027
  Serious: No
  Sender: FDA-Public Use
  Company Number: US-ASTRAZENECA-2009UW08191

PATIENT
  Age: 51 Year
  Sex: Female
  Weight: 93 kg

DRUGS (11)
  1. PRILOSEC [Suspect]
     Route: 048
  2. ADVAIR DISKUS 100/50 [Concomitant]
  3. ALPRAZOLAM [Concomitant]
  4. BUPROPION HCL [Concomitant]
  5. JANUVIA [Concomitant]
  6. LEXAPRO [Concomitant]
  7. PROVENTOL [Concomitant]
  8. SINGULAIR [Concomitant]
  9. SYNTHROID [Concomitant]
  10. ZOLPIDEM [Concomitant]
  11. XOPENEX [Concomitant]

REACTIONS (2)
  - DRUG INEFFECTIVE [None]
  - GASTROOESOPHAGEAL REFLUX DISEASE [None]
